FAERS Safety Report 6817097-1 (Version None)
Quarter: 2010Q3

REPORT INFORMATION
  Report Type: 
  Country: None (occurrence: None)
  Receive Date: 20100706
  Receipt Date: 20100625
  Transmission Date: 20110219
  Serious: Yes (Other)
  Sender: FDA-Public Use
  Company Number: FR-TEVA-239526ISR

PATIENT
  Sex: Female

DRUGS (4)
  1. AZILECT [Suspect]
     Route: 048
     Dates: start: 20100501, end: 20100623
  2. PRAMIPEXOLE DIHYDROCHLORIDE [Concomitant]
     Route: 048
  3. CANDESARTAN CILEXETIL [Concomitant]
     Indication: HYPERTENSION
     Route: 048
  4. ORAL CONTRACEPTIVE NOS [Concomitant]
     Route: 048

REACTIONS (4)
  - ERYTHEMA [None]
  - PAIN IN EXTREMITY [None]
  - VENOUS THROMBOSIS [None]
  - VERTIGO [None]
